FAERS Safety Report 7926208-6 (Version None)
Quarter: 2011Q4

REPORT INFORMATION
  Report Type: 
  Country: None (occurrence: None)
  Receive Date: 20111118
  Receipt Date: 20111026
  Transmission Date: 20120403
  Serious: No
  Sender: FDA-Public Use
  Company Number: US-AMGEN-USASP2011019101

PATIENT
  Age: 50 Year
  Sex: Male

DRUGS (1)
  1. ENBREL [Suspect]
     Indication: PSORIASIS
     Dosage: 50 MG, QWK
     Dates: start: 20040701, end: 20110331

REACTIONS (5)
  - VIRAL UPPER RESPIRATORY TRACT INFECTION [None]
  - WHEEZING [None]
  - CHEST DISCOMFORT [None]
  - HEADACHE [None]
  - PYREXIA [None]
